FAERS Safety Report 8802612 (Version 2)
Quarter: 2015Q2

REPORT INFORMATION
  Report Type: Report from Study
  Country: US (occurrence: US)
  Receive Date: 20120921
  Receipt Date: 20150624
  Transmission Date: 20150821
  Serious: Yes (Death, Hospitalization)
  Sender: FDA-Public Use
  Company Number: US-ROCHE-1091476

PATIENT
  Sex: Female
  Weight: 57 kg

DRUGS (21)
  1. DECADRON [Concomitant]
     Active Substance: DEXAMETHASONE
     Route: 042
  2. HEPARIN [Concomitant]
     Active Substance: HEPARIN SODIUM
     Route: 065
  3. NEXIUM [Concomitant]
     Active Substance: ESOMEPRAZOLE MAGNESIUM
     Route: 065
  4. WARFARIN [Concomitant]
     Active Substance: WARFARIN
     Route: 065
  5. AVASTIN [Suspect]
     Active Substance: BEVACIZUMAB
     Indication: BREAST CANCER FEMALE
     Route: 042
     Dates: start: 200512
  6. DECADRON [Concomitant]
     Active Substance: DEXAMETHASONE
     Route: 042
  7. TAGAMET [Concomitant]
     Active Substance: CIMETIDINE
     Route: 042
  8. TAXOL [Concomitant]
     Active Substance: PACLITAXEL
     Route: 042
  9. ZOMETA [Concomitant]
     Active Substance: ZOLEDRONIC ACID
  10. AVASTIN [Suspect]
     Active Substance: BEVACIZUMAB
     Route: 042
  11. CELEBREX [Concomitant]
     Active Substance: CELECOXIB
  12. AVAPRO [Concomitant]
     Active Substance: IRBESARTAN
     Route: 065
  13. ZOFRAN [Concomitant]
     Active Substance: ONDANSETRON HYDROCHLORIDE
  14. NEUPOGEN [Concomitant]
     Active Substance: FILGRASTIM
     Route: 065
  15. TYLENOL [Concomitant]
     Active Substance: ACETAMINOPHEN
  16. ANZEMET [Concomitant]
     Active Substance: DOLASETRON MESYLATE
  17. COUMADIN [Concomitant]
     Active Substance: WARFARIN SODIUM
     Route: 048
  18. COMPAZINE [Concomitant]
     Active Substance: PROCHLORPERAZINE MALEATE
  19. ALOXI [Concomitant]
     Active Substance: PALONOSETRON HYDROCHLORIDE
     Route: 042
  20. BENADRYL [Concomitant]
     Active Substance: DIPHENHYDRAMINE HYDROCHLORIDE
     Route: 042
  21. ATIVAN [Concomitant]
     Active Substance: LORAZEPAM

REACTIONS (20)
  - Asthenia [Unknown]
  - Diplopia [Unknown]
  - Nausea [Unknown]
  - Constipation [Recovered/Resolved]
  - Fatigue [Unknown]
  - Disease progression [Unknown]
  - Abdominal discomfort [Unknown]
  - Death [Fatal]
  - Gastrointestinal pain [Unknown]
  - Pleural effusion [Unknown]
  - Abdominal distension [Unknown]
  - Back pain [Recovering/Resolving]
  - Breath sounds abnormal [Unknown]
  - Dyspnoea [Unknown]
  - Hydronephrosis [Unknown]
  - Off label use [Unknown]
  - Ascites [Unknown]
  - Alopecia [Unknown]
  - Lymphadenopathy [Unknown]
  - Tenderness [Unknown]
